FAERS Safety Report 8818649 (Version 1)
Quarter: 2012Q4

REPORT INFORMATION
  Report Type: 
  Country: JP (occurrence: JP)
  Receive Date: 20121001
  Receipt Date: 20121001
  Transmission Date: 20130627
  Serious: Yes (Death, Hospitalization)
  Sender: FDA-Public Use
  Company Number: PHHY2012JP084906

PATIENT
  Age: 41 Year
  Sex: Female
  Weight: 47 kg

DRUGS (3)
  1. METHYLPREDNISOLONE [Suspect]
     Indication: INTERSTITIAL LUNG DISEASE
     Dosage: 10 mg, QD
  2. PREDNISOLONE [Suspect]
     Dosage: 20 mg, QD
     Route: 048
  3. PREDNISOLONE [Suspect]
     Dosage: 13 mg, QD
     Route: 048

REACTIONS (11)
  - Respiratory failure [Fatal]
  - Pneumatosis intestinalis [Fatal]
  - Pneumomediastinum [Fatal]
  - Shock [Unknown]
  - Interstitial lung disease [Unknown]
  - Diverticulitis [Unknown]
  - Muscular weakness [Unknown]
  - Rash [Unknown]
  - Pyrexia [Unknown]
  - Large intestine perforation [Unknown]
  - Abdominal pain [Unknown]
